FAERS Safety Report 16446143 (Version 1)
Quarter: 2019Q2

REPORT INFORMATION
  Report Type: Spontaneous
  Country: US (occurrence: US)
  Receive Date: 20190618
  Receipt Date: 20190618
  Transmission Date: 20190711
  Serious: No
  Sender: FDA-Public Use
  Company Number: US-TARO-2018TAR00523

PATIENT
  Age: 80 Year
  Sex: Male
  Weight: 56.69 kg

DRUGS (2)
  1. BETAMETHASONE DIPROPIONATE LOTION (AUGMENTED) USP 0.05% [Suspect]
     Active Substance: BETAMETHASONE DIPROPIONATE
     Indication: PRURITUS
     Dosage: UNK, 1X/DAY
     Route: 061
     Dates: start: 20180430, end: 201805
  2. BETAMETHASONE DIPROPIONATE LOTION (AUGMENTED) USP 0.05% [Suspect]
     Active Substance: BETAMETHASONE DIPROPIONATE
     Dosage: UNK, EVERY 48 HOURS
     Route: 061
     Dates: start: 201805, end: 2018

REACTIONS (5)
  - Feeling hot [Recovered/Resolved]
  - Inappropriate schedule of product administration [Recovered/Resolved]
  - Drug ineffective [Recovered/Resolved]
  - Feeling abnormal [Unknown]
  - Pruritus [Not Recovered/Not Resolved]

NARRATIVE: CASE EVENT DATE: 20180430
